FAERS Safety Report 25807474 (Version 3)
Quarter: 2025Q4

REPORT INFORMATION
  Report Type: Spontaneous
  Country: US (occurrence: US)
  Receive Date: 20250916
  Receipt Date: 20251020
  Transmission Date: 20260117
  Serious: No
  Sender: PFIZER
  Company Number: US-PFIZER INC-202500179656

PATIENT
  Age: 11 Year
  Sex: Male
  Weight: 36.74 kg

DRUGS (1)
  1. GENOTROPIN [Suspect]
     Active Substance: SOMATROPIN
     Indication: Short stature
     Dosage: UNK
     Dates: start: 2022

REACTIONS (2)
  - Drug dose omission by device [Unknown]
  - Device material issue [Unknown]
